FAERS Safety Report 7079319-4 (Version None)
Quarter: 2010Q4

REPORT INFORMATION
  Report Type: 
  Country: None (occurrence: None)
  Receive Date: 20101102
  Receipt Date: 20100106
  Transmission Date: 20110411
  Serious: No
  Sender: FDA-Public Use
  Company Number: A0838291A

PATIENT
  Age: 61 Year
  Sex: Male

DRUGS (1)
  1. RHYTHMOL [Suspect]
     Indication: ATRIAL FIBRILLATION
     Dosage: 225MG TWICE PER DAY
     Route: 048
     Dates: start: 20071127

REACTIONS (1)
  - LOW DENSITY LIPOPROTEIN INCREASED [None]
